FAERS Safety Report 4628266-3 (Version None)
Quarter: 2005Q2

REPORT INFORMATION
  Report Type: 
  Country: None (occurrence: None)
  Receive Date: 20050406
  Receipt Date: 20050322
  Transmission Date: 20051028
  Serious: Yes (Hospitalization, Other)
  Sender: FDA-Public Use
  Company Number: DE-JNJFOC-20050401153

PATIENT
  Age: 6 Week
  Sex: Male
  Weight: 3.8 kg

DRUGS (6)
  1. TRAMADOL HCL [Suspect]
     Route: 065
  2. ATROPINE [Suspect]
     Route: 065
  3. METHOHEXITONE [Concomitant]
     Route: 065
  4. SEVOFLURANE [Concomitant]
     Route: 065
  5. RINGER'S [Concomitant]
     Indication: DRUG USE FOR UNKNOWN INDICATION
     Route: 042
  6. GLUCOSE [Concomitant]
     Indication: DRUG USE FOR UNKNOWN INDICATION
     Route: 017

REACTIONS (1)
  - ANTICHOLINERGIC SYNDROME [None]
